FAERS Safety Report 11540905 (Version 1)
Quarter: 2015Q3

REPORT INFORMATION
  Report Type: Spontaneous
  Country: US (occurrence: US)
  Receive Date: 20150923
  Receipt Date: 20150923
  Transmission Date: 20151125
  Serious: No
  Sender: FDA-Public Use
  Company Number: US-FRESENIUS KABI-FK201403984

PATIENT
  Sex: Male

DRUGS (2)
  1. GENTAMICIN INJECTION, USP (GENTAMICIN SULFATE) (GENTAMICIN SULFATE) [Suspect]
     Active Substance: GENTAMICIN SULFATE
     Indication: INFECTION
     Route: 033
     Dates: start: 20140903, end: 20140905
  2. GENTAMICIN INJECTION, USP (GENTAMICIN SULFATE) (GENTAMICIN SULFATE) [Suspect]
     Active Substance: GENTAMICIN SULFATE
     Route: 033
     Dates: start: 20140905, end: 20140911

REACTIONS (3)
  - Tinnitus [Not Recovered/Not Resolved]
  - Vertigo [Not Recovered/Not Resolved]
  - Vision blurred [Not Recovered/Not Resolved]
